FAERS Safety Report 18243035 (Version 1)
Quarter: 2020Q3

REPORT INFORMATION
  Report Type: Spontaneous
  Country: US (occurrence: US)
  Receive Date: 20200908
  Receipt Date: 20200908
  Transmission Date: 20201103
  Serious: No
  Sender: FDA-Public Use
  Company Number: None

PATIENT
  Age: 21 Year
  Sex: Male
  Weight: 71.1 kg

DRUGS (3)
  1. FINASTERIDE 1 MG [Suspect]
     Active Substance: FINASTERIDE
     Dates: start: 20200708, end: 20200715
  2. ASJWAGAMDA [Concomitant]
  3. GINSENG [Concomitant]
     Active Substance: ASIAN GINSENG

REACTIONS (2)
  - Erectile dysfunction [None]
  - Libido increased [None]

NARRATIVE: CASE EVENT DATE: 20200715
